FAERS Safety Report 23635919 (Version 1)
Quarter: 2024Q1

REPORT INFORMATION
  Report Type: Spontaneous
  Country: US (occurrence: US)
  Receive Date: 20240315
  Receipt Date: 20240315
  Transmission Date: 20240410
  Serious: Yes (Other)
  Sender: FDA-Public Use
  Company Number: US-NOVITIUMPHARMA-2024USNVP00269

PATIENT
  Age: 23 Year
  Sex: Male

DRUGS (14)
  1. PREDNISONE [Suspect]
     Active Substance: PREDNISONE
     Indication: Diffuse large B-cell lymphoma
     Dosage: 5 CYCLES
  2. PREDNISONE [Suspect]
     Active Substance: PREDNISONE
     Indication: Acute myeloid leukaemia
     Dosage: 2 CYCLES
  3. RITUXIMAB [Concomitant]
     Active Substance: RITUXIMAB
     Indication: Diffuse large B-cell lymphoma
     Dosage: 5 CYCLES
  4. CYCLOPHOSPHAMIDE [Concomitant]
     Active Substance: CYCLOPHOSPHAMIDE
     Indication: Diffuse large B-cell lymphoma
     Dosage: 5 CYCLES
  5. CYCLOPHOSPHAMIDE [Concomitant]
     Active Substance: CYCLOPHOSPHAMIDE
     Indication: Acute myeloid leukaemia
  6. DOXORUBICIN [Concomitant]
     Active Substance: DOXORUBICIN
     Indication: Diffuse large B-cell lymphoma
     Dosage: 5 CYCLES
  7. VINCRISTINE [Concomitant]
     Active Substance: VINCRISTINE
     Indication: Diffuse large B-cell lymphoma
     Dosage: 5 CYCLES
  8. VINCRISTINE [Concomitant]
     Active Substance: VINCRISTINE
     Indication: Acute myeloid leukaemia
  9. OBINUTUZUMAB [Concomitant]
     Active Substance: OBINUTUZUMAB
     Indication: Diffuse large B-cell lymphoma
     Dosage: 2 CYCLES
  10. OBINUTUZUMAB [Concomitant]
     Active Substance: OBINUTUZUMAB
     Indication: Acute myeloid leukaemia
  11. AZACITIDINE [Concomitant]
     Active Substance: AZACITIDINE
     Indication: Diffuse large B-cell lymphoma
     Dosage: 2 CYCLES
  12. AZACITIDINE [Concomitant]
     Active Substance: AZACITIDINE
     Indication: Acute myeloid leukaemia
  13. VENETOCLAX [Concomitant]
     Active Substance: VENETOCLAX
     Indication: Diffuse large B-cell lymphoma
     Dosage: 2 CYCLES
  14. VENETOCLAX [Concomitant]
     Active Substance: VENETOCLAX
     Indication: Acute myeloid leukaemia

REACTIONS (7)
  - Febrile neutropenia [Unknown]
  - Staphylococcal sepsis [Unknown]
  - Brain abscess [Unknown]
  - Endocarditis [Unknown]
  - Bacillus bacteraemia [Unknown]
  - Clostridium difficile infection [Unknown]
  - Rebound effect [Unknown]
